FAERS Safety Report 5476812-2 (Version None)
Quarter: 2007Q4

REPORT INFORMATION
  Report Type: 
  Country: None (occurrence: None)
  Receive Date: 20071002
  Receipt Date: 20070920
  Transmission Date: 20080405
  Serious: Yes (Life-Threatening)
  Sender: FDA-Public Use
  Company Number: PHO-2007-046

PATIENT
  Age: 59 Year
  Sex: Male

DRUGS (12)
  1. PHOTOFRIN [Suspect]
     Indication: PHOTODYNAMIC THERAPY
     Dosage: 142.2 MG, 1 DOSE, IV
     Route: 042
     Dates: start: 20071009
  2. VANCOMYCIN [Concomitant]
  3. BUDIVACAINE [Concomitant]
  4. CEFEPINE [Concomitant]
  5. FLAGYL [Concomitant]
  6. ZANTAC [Concomitant]
  7. LOPRESOR (METOPROLOL) [Concomitant]
  8. LEVOTHYROXINE SODIUM [Concomitant]
  9. ZOFRAN [Concomitant]
  10. PROPOFOL [Concomitant]
  11. HEPARIN [Concomitant]
  12. NEOSYNEPHRINE [Concomitant]

REACTIONS (3)
  - BLOOD BILIRUBIN INCREASED [None]
  - RESPIRATORY DISTRESS [None]
  - TRANSAMINASES INCREASED [None]
